FAERS Safety Report 13484733 (Version 6)
Quarter: 2017Q4

REPORT INFORMATION
  Report Type: Spontaneous
  Country: US (occurrence: US)
  Receive Date: 20170426
  Receipt Date: 20171006
  Transmission Date: 20180320
  Serious: Yes (Other)
  Sender: FDA-Public Use
  Company Number: US-PFIZER INC-2017179825

PATIENT
  Age: 70 Year
  Sex: Female
  Weight: 61 kg

DRUGS (4)
  1. XANAX [Suspect]
     Active Substance: ALPRAZOLAM
     Indication: ANXIETY
     Dosage: UNK, DAILY (TWO OR THREE 1-3 TIMES A DAY)
  2. XANAX [Suspect]
     Active Substance: ALPRAZOLAM
     Dosage: 3 DF, DAILY
  3. LEXAPRO [Concomitant]
     Active Substance: ESCITALOPRAM OXALATE
     Indication: DEPRESSION
     Dosage: UNK
  4. XANAX [Suspect]
     Active Substance: ALPRAZOLAM
     Dosage: 1 DF, DAILY

REACTIONS (11)
  - Abdominal pain [Unknown]
  - Depression [Unknown]
  - Therapeutic response unexpected [Unknown]
  - Pre-existing condition improved [Unknown]
  - Disease recurrence [Unknown]
  - Menstrual disorder [Unknown]
  - Chills [Not Recovered/Not Resolved]
  - Intentional product misuse [Unknown]
  - Paraesthesia [Unknown]
  - Poisoning [Unknown]
  - Weight decreased [Unknown]
